FAERS Safety Report 6785911-4 (Version None)
Quarter: 2010Q2

REPORT INFORMATION
  Report Type: 
  Country: None (occurrence: None)
  Receive Date: 20100622
  Receipt Date: 20100622
  Transmission Date: 20101027
  Serious: Yes (Other)
  Sender: FDA-Public Use
  Company Number: None

PATIENT
  Sex: Male
  Weight: 102.0593 kg

DRUGS (1)
  1. ANDROGEL [Suspect]
     Indication: HYPOGONADISM
     Dosage: 4 PUMPS TYPICALLY=5 DAILY TOP
     Route: 061
     Dates: start: 20080301, end: 20100301

REACTIONS (2)
  - METASTASES TO LYMPH NODES [None]
  - PROSTATE CANCER STAGE IV [None]
